FAERS Safety Report 4384983-4 (Version None)
Quarter: 2004Q2

REPORT INFORMATION
  Report Type: 
  Country: None (occurrence: None)
  Receive Date: 20040625
  Receipt Date: 20000901
  Transmission Date: 20050107
  Serious: Yes (Hospitalization)
  Sender: FDA-Public Use
  Company Number: SE-BRISTOL-MYERS SQUIBB COMPANY-12369906

PATIENT
  Age: 74 Year
  Sex: Female

DRUGS (3)
  1. COAPROVEL TABS 150MG/12.5MG [Suspect]
     Indication: ESSENTIAL HYPERTENSION
     Dosage: DOSE: 150/12.5 MG
     Route: 048
     Dates: start: 20030325, end: 20030630
  2. TROMBYL [Concomitant]
     Route: 048
  3. TRIOBE [Concomitant]
     Route: 048

REACTIONS (3)
  - HEPATIC FIBROSIS [None]
  - HEPATIC NECROSIS [None]
  - HEPATITIS [None]
